FAERS Safety Report 6789107-1 (Version None)
Quarter: 2010Q2

REPORT INFORMATION
  Report Type: 
  Country: None (occurrence: None)
  Receive Date: 20100623
  Receipt Date: 20080721
  Transmission Date: 20101027
  Serious: Yes (Other)
  Sender: FDA-Public Use
  Company Number: US-PFIZER INC-2008045317

PATIENT
  Age: 33 Year
  Sex: Female
  Weight: 80.7 kg

DRUGS (2)
  1. DEPO-PROVERA SUSPENSION/INJ [Suspect]
     Indication: CONTRACEPTION
     Dosage: FIRST INJECTION, EVERY 13 WEEKS
     Route: 030
     Dates: start: 20070402, end: 20070402
  2. DEPO-PROVERA SUSPENSION/INJ [Suspect]
     Dosage: LAST INJECTION
     Route: 030
     Dates: start: 20080523, end: 20080523

REACTIONS (7)
  - ANGIOEDEMA [None]
  - COUGH [None]
  - HYPERSENSITIVITY [None]
  - HYPOAESTHESIA [None]
  - PARAESTHESIA [None]
  - PRURITUS [None]
  - URTICARIA [None]
